FAERS Safety Report 23100340 (Version 1)
Quarter: 2023Q4

REPORT INFORMATION
  Report Type: Spontaneous
  Country: US (occurrence: None)
  Receive Date: 20231020
  Receipt Date: 20231020
  Transmission Date: 20240110
  Serious: Yes (Hospitalization)
  Sender: FDA-Public Use
  Company Number: None

PATIENT
  Age: 60 Year
  Sex: Female

DRUGS (1)
  1. LENALIDOMIDE [Suspect]
     Active Substance: LENALIDOMIDE
     Indication: Plasma cell myeloma
     Dosage: FREQUENCY : ONCE;?
     Route: 048
     Dates: start: 20230922, end: 20231012

REACTIONS (2)
  - Hypotension [None]
  - Asthenia [None]

NARRATIVE: CASE EVENT DATE: 20231016
